FAERS Safety Report 19253256 (Version 2)
Quarter: 2021Q2

REPORT INFORMATION
  Report Type: Spontaneous
  Country: DE (occurrence: DE)
  Receive Date: 20210513
  Receipt Date: 20210601
  Transmission Date: 20210717
  Serious: Yes (Other)
  Sender: FDA-Public Use
  Company Number: DE-SA-2021SA157501

PATIENT
  Age: 65 Year
  Sex: Male

DRUGS (1)
  1. DUPILUMAB [Suspect]
     Active Substance: DUPILUMAB
     Indication: PSORIASIS
     Dosage: 300 MG, QOW

REACTIONS (9)
  - Off label use [Unknown]
  - Cutaneous T-cell lymphoma [Recovering/Resolving]
  - Anaplastic large-cell lymphoma [Unknown]
  - Swelling [Unknown]
  - Dermatitis exfoliative generalised [Recovering/Resolving]
  - Dermatitis psoriasiform [Recovering/Resolving]
  - Lymphocytosis [Recovering/Resolving]
  - Lymphadenopathy [Unknown]
  - Skin exfoliation [Recovering/Resolving]
